FAERS Safety Report 20016452 (Version 1)
Quarter: 2021Q4

REPORT INFORMATION
  Report Type: Spontaneous
  Country: US (occurrence: None)
  Receive Date: 20211104
  Receipt Date: 20211104
  Transmission Date: 20220304
  Serious: No
  Sender: FDA-Public Use
  Company Number: None

PATIENT
  Age: 64 Year
  Sex: Female

DRUGS (1)
  1. MYCOPHENOLATE MOFETIL [Suspect]
     Active Substance: MYCOPHENOLATE MOFETIL
     Indication: Nausea
     Dosage: FREQUENCY : TWICE A DAY;?
     Route: 048
     Dates: start: 20210430

REACTIONS (1)
  - Nausea [None]

NARRATIVE: CASE EVENT DATE: 20210801
